FAERS Safety Report 4690113-1 (Version None)
Quarter: 2005Q2

REPORT INFORMATION
  Report Type: 
  Country: None (occurrence: None)
  Receive Date: 20050613
  Receipt Date: 20050601
  Transmission Date: 20051028
  Serious: Yes (Life-Threatening, Hospitalization)
  Sender: FDA-Public Use
  Company Number: BRO-008725

PATIENT

DRUGS (1)
  1. IOPAMIDOL / IOPAMIRO 370 (BATCH #(S): E4710) [Suspect]
     Indication: ANGIOGRAM
     Dosage: IA
     Route: 014
     Dates: start: 20050531, end: 20050531

REACTIONS (3)
  - CEREBRAL INFARCTION [None]
  - HEPATIC ENZYME INCREASED [None]
  - UNEVALUABLE EVENT [None]
